FAERS Safety Report 14380321 (Version 2)
Quarter: 2018Q1

REPORT INFORMATION
  Report Type: Report from Study
  Country: US (occurrence: US)
  Receive Date: 20180112
  Receipt Date: 20180219
  Transmission Date: 20180509
  Serious: Yes (Other)
  Sender: FDA-Public Use
  Company Number: US-UCBSA-2017026379

PATIENT
  Sex: Female

DRUGS (3)
  1. CERTOLIZUMAB PEGOL [Suspect]
     Active Substance: CERTOLIZUMAB PEGOL
     Indication: PRODUCT USED FOR UNKNOWN INDICATION
     Dosage: UNK
  2. MTX [Concomitant]
     Active Substance: METHOTREXATE SODIUM
     Indication: PRODUCT USED FOR UNKNOWN INDICATION
     Dosage: UNK
  3. PLAQUENIL [Concomitant]
     Active Substance: HYDROXYCHLOROQUINE SULFATE
     Indication: PRODUCT USED FOR UNKNOWN INDICATION

REACTIONS (13)
  - Fatigue [Unknown]
  - Oropharyngeal pain [Unknown]
  - Influenza [Unknown]
  - Feeling abnormal [Unknown]
  - Sjogren^s syndrome [Unknown]
  - Ear pain [Unknown]
  - Inflammation [Recovered/Resolved]
  - Injection site pain [Unknown]
  - Sleep disorder [Unknown]
  - Dysphonia [Unknown]
  - Unevaluable event [Unknown]
  - Hepatic enzyme increased [Unknown]
  - Pyrexia [Unknown]
